FAERS Safety Report 5877762-X (Version None)
Quarter: 2008Q3

REPORT INFORMATION
  Report Type: 
  Country: None (occurrence: None)
  Receive Date: 20080911
  Receipt Date: 20080828
  Transmission Date: 20090109
  Serious: Yes (Disabling)
  Sender: FDA-Public Use
  Company Number: FR-ELI_LILLY_AND_COMPANY-FR200805004474

PATIENT
  Age: 64 Year
  Sex: Female
  Weight: 54 kg

DRUGS (3)
  1. CYMBALTA [Suspect]
     Indication: NEURALGIA
     Dosage: 60 MG, DAILY (1/D)
     Route: 048
     Dates: start: 20080208
  2. LYRICA [Concomitant]
     Indication: NEURALGIA
     Dosage: 50 MG, DAILY (1/D)
     Route: 048
     Dates: start: 20071208
  3. TOPALGIC [Concomitant]
     Indication: NEURALGIA
     Dates: start: 20080509

REACTIONS (2)
  - VISUAL IMPAIRMENT [None]
  - VITREOUS DETACHMENT [None]
